FAERS Safety Report 4445843-3 (Version None)
Quarter: 2004Q3

REPORT INFORMATION
  Report Type: 
  Country: None (occurrence: None)
  Receive Date: 20040903
  Receipt Date: 20040827
  Transmission Date: 20050211
  Serious: Yes (Disabling)
  Sender: FDA-Public Use
  Company Number: 2004UW12899

PATIENT
  Age: 4 Year
  Sex: Male
  Weight: 20.4119 kg

DRUGS (3)
  1. PRILOSEC [Suspect]
     Indication: GASTROENTERITIS HELICOBACTER
     Dosage: 20 MG DAILY PO
     Route: 048
     Dates: start: 20010106, end: 20020530
  2. PRILOSEC [Suspect]
     Indication: GASTROOESOPHAGEAL REFLUX DISEASE
     Dosage: 20 MG DAILY PO
     Route: 048
     Dates: start: 20010106, end: 20020530
  3. ZANTAC [Concomitant]

REACTIONS (4)
  - ABNORMAL BEHAVIOUR [None]
  - PSYCHOMOTOR HYPERACTIVITY [None]
  - SENSORY INTEGRATIVE DYSFUNCTION [None]
  - SPEECH DISORDER DEVELOPMENTAL [None]
